FAERS Safety Report 7541319 (Version 6)
Quarter: 2014Q3

REPORT INFORMATION
  Report Type: Spontaneous
  Country: US (occurrence: US)
  Receive Date: 20100803
  Receipt Date: 20140827
  Transmission Date: 20150326
  Serious: Yes (Hospitalization, Other)
  Sender: FDA-Public Use
  Company Number: US-009507513-2009SP041027

PATIENT
  Age: 21 Year
  Sex: Female
  Weight: 113.4 kg

DRUGS (1)
  1. NUVARING [Suspect]
     Active Substance: ETHINYL ESTRADIOL\ETONOGESTREL
     Indication: CONTRACEPTION
     Route: 067
     Dates: start: 200603, end: 200712

REACTIONS (8)
  - Headache [Unknown]
  - Drug dependence [Unknown]
  - Bronchitis [Unknown]
  - Thrombosis [Unknown]
  - Pulmonary embolism [Unknown]
  - Alcoholism [Unknown]
  - Hepatic cyst [Unknown]
  - Chlamydial infection [Unknown]

NARRATIVE: CASE EVENT DATE: 20061218
